FAERS Safety Report 7247410-5 (Version None)
Quarter: 2011Q1

REPORT INFORMATION
  Report Type: 
  Country: None (occurrence: None)
  Receive Date: 20110127
  Receipt Date: 20110118
  Transmission Date: 20110831
  Serious: Yes (Hospitalization)
  Sender: FDA-Public Use
  Company Number: PHHY2010US88874

PATIENT
  Sex: Female
  Weight: 53 kg

DRUGS (2)
  1. TOBI [Suspect]
     Indication: CYSTIC FIBROSIS
     Dosage: 300 MG, BID
  2. TOBI [Suspect]
     Dosage: UNK

REACTIONS (1)
  - STAPHYLOCOCCAL INFECTION [None]
